FAERS Safety Report 25494322 (Version 1)
Quarter: 2025Q2

REPORT INFORMATION
  Report Type: Spontaneous
  Country: KR (occurrence: KR)
  Receive Date: 20250630
  Receipt Date: 20250630
  Transmission Date: 20250717
  Serious: Yes (Other)
  Sender: MYLAN
  Company Number: KR-MYLANLABS-2025M1054743

PATIENT
  Sex: Male
  Weight: 64 kg

DRUGS (8)
  1. CELEBREX [Suspect]
     Active Substance: CELECOXIB
     Indication: Benign neoplasm
     Dosage: 1 DOSAGE FORM, BID (TWICE DAILY)
     Dates: start: 20230921, end: 20230930
  2. CELEBREX [Suspect]
     Active Substance: CELECOXIB
     Dosage: 1 DOSAGE FORM, BID (TWICE DAILY)
     Route: 065
     Dates: start: 20230921, end: 20230930
  3. CELEBREX [Suspect]
     Active Substance: CELECOXIB
     Dosage: 1 DOSAGE FORM, BID (TWICE DAILY)
     Route: 065
     Dates: start: 20230921, end: 20230930
  4. CELEBREX [Suspect]
     Active Substance: CELECOXIB
     Dosage: 1 DOSAGE FORM, BID (TWICE DAILY)
     Dates: start: 20230921, end: 20230930
  5. PREGABALIN [Suspect]
     Active Substance: PREGABALIN
     Indication: Benign neoplasm
     Dosage: 1 DOSAGE FORM, BID (TWICE DAILY)
     Dates: start: 20230921, end: 20230930
  6. PREGABALIN [Suspect]
     Active Substance: PREGABALIN
     Dosage: 1 DOSAGE FORM, BID (TWICE DAILY)
     Route: 065
     Dates: start: 20230921, end: 20230930
  7. PREGABALIN [Suspect]
     Active Substance: PREGABALIN
     Dosage: 1 DOSAGE FORM, BID (TWICE DAILY)
     Route: 065
     Dates: start: 20230921, end: 20230930
  8. PREGABALIN [Suspect]
     Active Substance: PREGABALIN
     Dosage: 1 DOSAGE FORM, BID (TWICE DAILY)
     Dates: start: 20230921, end: 20230930

REACTIONS (7)
  - Chest discomfort [Recovered/Resolved]
  - Pruritus [Recovered/Resolved]
  - Rash [Recovered/Resolved]
  - Urticaria [Recovered/Resolved]
  - Dyspnoea [Recovered/Resolved]
  - Face oedema [Recovered/Resolved]
  - Off label use [Unknown]

NARRATIVE: CASE EVENT DATE: 20230921
